FAERS Safety Report 15925262 (Version 4)
Quarter: 2019Q3

REPORT INFORMATION
  Report Type: Spontaneous
  Country: US (occurrence: US)
  Receive Date: 20190206
  Receipt Date: 20190709
  Transmission Date: 20191004
  Serious: No
  Sender: FDA-Public Use
  Company Number: US-PFIZER INC-2019051832

PATIENT
  Age: 54 Year
  Sex: Female

DRUGS (3)
  1. SILVER SULFADIAZENE [Suspect]
     Active Substance: SILVER SULFADIAZINE
     Dosage: UNK
  2. DEXTRAN [Suspect]
     Active Substance: DEXTRAN
     Dosage: UNK
  3. IRON [Suspect]
     Active Substance: IRON
     Dosage: UNK

REACTIONS (1)
  - Drug hypersensitivity [Unknown]
